FAERS Safety Report 4370583-9 (Version None)
Quarter: 2004Q2

REPORT INFORMATION
  Report Type: 
  Country: None (occurrence: None)
  Receive Date: 20040521
  Receipt Date: 20040216
  Transmission Date: 20050107
  Serious: Yes (Other)
  Sender: FDA-Public Use
  Company Number: 200410055BFR

PATIENT
  Age: 16 Year
  Sex: Male
  Weight: 48 kg

DRUGS (3)
  1. CIPROFLOXACIN [Suspect]
     Indication: OSTEOMYELITIS
     Dosage: 1000 MG, TOTAL DAILY, ORAL
     Route: 048
     Dates: start: 20040111, end: 20040121
  2. UNSPECIFIED ANTIBIOTICS [Concomitant]
  3. VASTAREL ^BIOPHARMA^ [Concomitant]

REACTIONS (3)
  - ANAEMIA [None]
  - COOMBS TEST POSITIVE [None]
  - NEUTROPENIA [None]
